FAERS Safety Report 6518632-3 (Version None)
Quarter: 2009Q4

REPORT INFORMATION
  Report Type: 
  Country: None (occurrence: None)
  Receive Date: 20091218
  Receipt Date: 20091210
  Transmission Date: 20100525
  Serious: Yes (Other)
  Sender: FDA-Public Use
  Company Number: ADR53382009

PATIENT
  Age: 42 Year
  Sex: Male

DRUGS (3)
  1. RISPERIDONE [Suspect]
     Dosage: 6 MG/DAY ORAL
     Route: 048
     Dates: end: 20080601
  2. CLOZARIL [Concomitant]
  3. THIAMINE [Concomitant]

REACTIONS (4)
  - ANXIETY [None]
  - BLOOD PRESSURE DIASTOLIC INCREASED [None]
  - FATIGUE [None]
  - TACHYCARDIA [None]
